FAERS Safety Report 17722837 (Version 1)
Quarter: 2020Q2

REPORT INFORMATION
  Report Type: Spontaneous
  Country: FR (occurrence: FR)
  Receive Date: 20200429
  Receipt Date: 20200429
  Transmission Date: 20200714
  Serious: Yes (Hospitalization)
  Sender: FDA-Public Use
  Company Number: FR-TEVA-2020-FR-1227407

PATIENT
  Age: 43 Year
  Sex: Female
  Weight: 46 kg

DRUGS (1)
  1. KETOPROFENE [Suspect]
     Active Substance: KETOPROFEN
     Indication: CERVICAL RADICULOPATHY
     Dosage: 200 MG
     Route: 048
     Dates: start: 20170204, end: 20170215

REACTIONS (2)
  - Pelvic abscess [Recovered/Resolved]
  - Enteritis [Recovered/Resolved]

NARRATIVE: CASE EVENT DATE: 20170215
